FAERS Safety Report 15302095 (Version 2)
Quarter: 2018Q4

REPORT INFORMATION
  Report Type: Spontaneous
  Country: US (occurrence: US)
  Receive Date: 20180821
  Receipt Date: 20181023
  Transmission Date: 20190204
  Serious: Yes (Other)
  Sender: FDA-Public Use
  Company Number: US-SA-2018SA223871

PATIENT
  Sex: Male
  Weight: 131.5 kg

DRUGS (25)
  1. VITAMIN D3 [Concomitant]
     Active Substance: CHOLECALCIFEROL
     Route: 065
  2. METHOTREXATE. [Suspect]
     Active Substance: METHOTREXATE
     Indication: RHEUMATOID ARTHRITIS
     Dosage: UNK UNK, UNK
     Route: 048
     Dates: start: 20080122, end: 20140206
  3. SIMPONI [Suspect]
     Active Substance: GOLIMUMAB
     Indication: RHEUMATOID ARTHRITIS
     Dosage: UNK UNK, UNK
     Route: 065
     Dates: start: 20150330
  4. XELJANZ [Suspect]
     Active Substance: TOFACITINIB CITRATE
     Dosage: 5 MG, BID
     Route: 048
  5. PREDNISONE. [Concomitant]
     Active Substance: PREDNISONE
     Route: 065
  6. ORENCIA [Concomitant]
     Active Substance: ABATACEPT
     Dosage: UNK
     Route: 065
     Dates: start: 20160315, end: 20170223
  7. PLAQUENIL [Concomitant]
     Active Substance: HYDROXYCHLOROQUINE SULFATE
     Route: 065
  8. VITAMIN C [ASCORBIC ACID] [Concomitant]
     Route: 065
  9. GUNDRY MD VITAL REDS [Concomitant]
     Route: 065
  10. ARAVA [Suspect]
     Active Substance: LEFLUNOMIDE
     Indication: RHEUMATOID ARTHRITIS
     Dosage: UNK UNK, UNK
     Route: 065
  11. LASIX [Suspect]
     Active Substance: FUROSEMIDE
     Route: 065
  12. ENBREL [Suspect]
     Active Substance: ETANERCEPT
     Dosage: UNK
     Route: 065
     Dates: start: 20080811, end: 2009
  13. XELJANZ [Suspect]
     Active Substance: TOFACITINIB CITRATE
     Dosage: 5 MG, BID
     Route: 048
  14. IBUPROFEN. [Suspect]
     Active Substance: IBUPROFEN
     Route: 065
  15. TYLENOL [Concomitant]
     Active Substance: ACETAMINOPHEN
     Route: 065
  16. BENZYLPENICILLIN [Suspect]
     Active Substance: PENICILLIN G
     Route: 065
  17. XELJANZ [Suspect]
     Active Substance: TOFACITINIB CITRATE
     Dosage: 5 UNK
     Route: 048
     Dates: start: 2018, end: 2018
  18. PEPCID AC [Concomitant]
     Active Substance: FAMOTIDINE
     Dosage: UNK
     Route: 065
  19. FAMOTIDINE. [Concomitant]
     Active Substance: FAMOTIDINE
     Route: 065
  20. TURMERIC [CURCUMA LONGA] [Concomitant]
     Route: 065
  21. GABAPENTIN. [Suspect]
     Active Substance: GABAPENTIN
     Route: 065
  22. FLUTICASONE. [Suspect]
     Active Substance: FLUTICASONE
     Route: 065
  23. XELJANZ [Suspect]
     Active Substance: TOFACITINIB CITRATE
     Indication: RHEUMATOID ARTHRITIS
     Dosage: 5 MG, BID
     Route: 048
  24. XELJANZ [Suspect]
     Active Substance: TOFACITINIB CITRATE
     Dosage: 5 UNK
     Route: 048
  25. ENBREL [Suspect]
     Active Substance: ETANERCEPT
     Dosage: UNK UNK, UNK
     Route: 065
     Dates: start: 20081108, end: 2009

REACTIONS (26)
  - Pain [Not Recovered/Not Resolved]
  - Dysstasia [Unknown]
  - Impaired quality of life [Not Recovered/Not Resolved]
  - Adverse event [Unknown]
  - Alopecia [Unknown]
  - Pruritus [Unknown]
  - Foot deformity [Unknown]
  - Musculoskeletal pain [Unknown]
  - Fall [Unknown]
  - Musculoskeletal disorder [Unknown]
  - Grip strength decreased [Not Recovered/Not Resolved]
  - Spinal operation [Unknown]
  - Hypoaesthesia [Unknown]
  - Joint swelling [Unknown]
  - Arthralgia [Not Recovered/Not Resolved]
  - Surgery [Unknown]
  - Drug hypersensitivity [Unknown]
  - Weight increased [Not Recovered/Not Resolved]
  - Pain in extremity [Not Recovered/Not Resolved]
  - Mobility decreased [Unknown]
  - Peripheral swelling [Recovered/Resolved]
  - Muscle rupture [Unknown]
  - Impaired healing [Not Recovered/Not Resolved]
  - Cerebral disorder [Unknown]
  - Blister [Recovering/Resolving]
  - Decreased immune responsiveness [Unknown]

NARRATIVE: CASE EVENT DATE: 201712
